FAERS Safety Report 7484461-X (Version None)
Quarter: 2011Q1

REPORT INFORMATION
  Report Type: 
  Country: None (occurrence: None)
  Receive Date: 20110309
  Receipt Date: 20101208
  Transmission Date: 20110831
  Serious: No
  Sender: FDA-Public Use
  Company Number: 2010SP063843

PATIENT
  Age: 38 Year
  Sex: Female

DRUGS (1)
  1. SAPHRIS [Suspect]
     Indication: SCHIZOAFFECTIVE DISORDER
     Dosage: 5 MG; BID; SL, 10 MG; BID
     Route: 060
     Dates: start: 20100720

REACTIONS (1)
  - MYALGIA [None]
